APPROVED DRUG PRODUCT: GABAPENTIN
Active Ingredient: GABAPENTIN
Strength: 600MG
Dosage Form/Route: TABLET;ORAL
Application: A217965 | Product #001 | TE Code: AB1
Applicant: LAURUS LABS LTD
Approved: Apr 8, 2024 | RLD: No | RS: No | Type: RX